FAERS Safety Report 25654463 (Version 2)
Quarter: 2025Q4

REPORT INFORMATION
  Report Type: Spontaneous
  Country: JP (occurrence: JP)
  Receive Date: 20250807
  Receipt Date: 20251203
  Transmission Date: 20260118
  Serious: Yes (Death, Other)
  Sender: MERCK SHARP & DOHME LLC
  Company Number: JP-009507513-2316544

PATIENT
  Age: 56 Year
  Sex: Female

DRUGS (4)
  1. KEYTRUDA [Suspect]
     Active Substance: PEMBROLIZUMAB
     Indication: Cervix carcinoma stage IV
     Dosage: 200MG?1/3 WEEKS
     Route: 041
     Dates: start: 2024
  2. CARBOPLATIN [Suspect]
     Active Substance: CARBOPLATIN
     Indication: Cervix carcinoma stage IV
  3. PACLITAXEL [Suspect]
     Active Substance: PACLITAXEL
     Indication: Cervix carcinoma stage IV
  4. BEVACIZUMAB [Suspect]
     Active Substance: BEVACIZUMAB
     Indication: Cervix carcinoma stage IV

REACTIONS (8)
  - Death [Fatal]
  - Cardio-respiratory arrest [Unknown]
  - Renal impairment [Unknown]
  - Hyperkalaemia [Unknown]
  - Immune-mediated enterocolitis [Recovering/Resolving]
  - Hepatic function abnormal [Unknown]
  - Immune-mediated adrenal insufficiency [Recovering/Resolving]
  - Dyspnoea [Unknown]

NARRATIVE: CASE EVENT DATE: 20250201
